FAERS Safety Report 11740659 (Version 2)
Quarter: 2015Q4

REPORT INFORMATION
  Report Type: Spontaneous
  Country: US (occurrence: US)
  Receive Date: 20151110
  Receipt Date: 20151120
  Transmission Date: 20160304
  Serious: No
  Sender: FDA-Public Use
  Company Number: US-ELI_LILLY_AND_COMPANY-US201205003700

PATIENT
  Sex: Female
  Weight: 74.38 kg

DRUGS (5)
  1. METOPROLOL [Concomitant]
     Active Substance: METOPROLOL
     Dosage: 25 MG, QD
  2. FORTEO [Suspect]
     Active Substance: TERIPARATIDE
     Indication: OSTEOPOROSIS
     Dosage: 20 UG, QD
     Route: 058
     Dates: start: 20120501
  3. LEVOTHYROXINE. [Concomitant]
     Active Substance: LEVOTHYROXINE
     Dosage: 75 UG, QD
  4. FORTEO [Suspect]
     Active Substance: TERIPARATIDE
     Dosage: 20 UG, QD
     Route: 058
     Dates: end: 20130307
  5. FORTEO [Suspect]
     Active Substance: TERIPARATIDE
     Dosage: 20 UG, QD
     Route: 058

REACTIONS (11)
  - Muscle tightness [Unknown]
  - Limb discomfort [Unknown]
  - Intervertebral disc disorder [Unknown]
  - Weight increased [Unknown]
  - Pain in extremity [Unknown]
  - Drug ineffective [Unknown]
  - Muscular weakness [Unknown]
  - Pain [Unknown]
  - Incorrect product storage [Unknown]
  - Abdominal pain upper [Unknown]
  - Back pain [Unknown]
